FAERS Safety Report 5088052-X (Version None)
Quarter: 2006Q3

REPORT INFORMATION
  Report Type: 
  Country: None (occurrence: None)
  Receive Date: 20060727
  Receipt Date: 20060516
  Transmission Date: 20061208
  Serious: Yes (Other)
  Sender: FDA-Public Use
  Company Number: 2006033649

PATIENT
  Age: 87 Year
  Sex: Female
  Weight: 51.7101 kg

DRUGS (9)
  1. LYRICA [Suspect]
     Indication: NEUROPATHY
     Dosage: 150 MG (75 MG, 2 IN 1 D)
     Dates: start: 20060220, end: 20060220
  2. CAPTOPRIL [Concomitant]
  3. GLIPIZIDE [Concomitant]
  4. CLONIDINE [Concomitant]
  5. FUROSEMIDE [Concomitant]
  6. ALL OTHER THERAPEUTIC PRODUCTS (ALL OTHER THERAPEUTIC PRODUCTS) [Concomitant]
  7. DIGOXIN [Concomitant]
  8. ATENOLOL [Concomitant]
  9. LIPITOR [Concomitant]

REACTIONS (4)
  - FEELING ABNORMAL [None]
  - PAIN IN EXTREMITY [None]
  - SCIATICA [None]
  - VISION BLURRED [None]
